FAERS Safety Report 11185520 (Version 1)
Quarter: 2015Q2

REPORT INFORMATION
  Report Type: Spontaneous
  Country: TR (occurrence: TR)
  Receive Date: 20150612
  Receipt Date: 20150612
  Transmission Date: 20150821
  Serious: Yes (Other)
  Sender: FDA-Public Use
  Company Number: TR-BAYER-2015-315630

PATIENT
  Age: 61 Year
  Sex: Male

DRUGS (5)
  1. CLOPIDOGREL [Suspect]
     Active Substance: CLOPIDOGREL BISULFATE
  2. FONDAPARINUX [Concomitant]
     Active Substance: FONDAPARINUX
  3. HEPARIN [Suspect]
     Active Substance: HEPARIN SODIUM
  4. ACETYLSALICYLIC ACID({=100 MG) [Suspect]
     Active Substance: ASPIRIN
  5. HEPARIN [Suspect]
     Active Substance: HEPARIN SODIUM
     Indication: HAEMODIALYSIS

REACTIONS (4)
  - Cerebral ischaemia [None]
  - Drug ineffective [None]
  - Heparin-induced thrombocytopenia [None]
  - Gangrene [None]
